FAERS Safety Report 6159421-1 (Version None)
Quarter: 2009Q2

REPORT INFORMATION
  Report Type: 
  Country: None (occurrence: None)
  Receive Date: 20090417
  Receipt Date: 20090415
  Transmission Date: 20091009
  Serious: Yes (Death)
  Sender: FDA-Public Use
  Company Number: PHHY2009JP13940

PATIENT
  Sex: Female
  Weight: 45 kg

DRUGS (4)
  1. DIOVAN [Suspect]
     Indication: HYPERTENSION
     Dosage: 40 MG, QD
     Route: 048
     Dates: start: 20071024, end: 20080107
  2. DEPAKENE [Concomitant]
     Dosage: 600 MG, UNK
     Route: 048
  3. SYMMETREL [Concomitant]
     Dosage: 200 MG, UNK
     Route: 048
  4. ARICEPT [Concomitant]
     Dosage: 5 MG, UNK
     Route: 048

REACTIONS (1)
  - DEATH [None]
